FAERS Safety Report 25919370 (Version 1)
Quarter: 2025Q4

REPORT INFORMATION
  Report Type: Spontaneous
  Country: US (occurrence: None)
  Receive Date: 20251013
  Receipt Date: 20251013
  Transmission Date: 20260117
  Serious: Yes (Hospitalization)
  Sender: FDA-CTU
  Company Number: None

PATIENT
  Age: 61 Year
  Sex: Male

DRUGS (2)
  1. YERVOY [Suspect]
     Active Substance: IPILIMUMAB
  2. OPDIVO [Suspect]
     Active Substance: NIVOLUMAB

REACTIONS (8)
  - Nonspecific reaction [None]
  - Dehydration [None]
  - Near death experience [None]
  - Urinary bladder haemorrhage [None]
  - Swelling face [None]
  - Arteritis [None]
  - Gait inability [None]
  - Influenza [None]
